FAERS Safety Report 10487730 (Version 1)
Quarter: 2014Q4

REPORT INFORMATION
  Report Type: Spontaneous
  Country: US (occurrence: US)
  Receive Date: 20141001
  Receipt Date: 20141001
  Transmission Date: 20150528
  Serious: Yes (Hospitalization, Other)
  Sender: FDA-Public Use
  Company Number: US-RB PHARMACEUTICALS LIMITED-RB-71912-2014

PATIENT
  Sex: Female
  Weight: 2.52 kg

DRUGS (2)
  1. SUBUTEX [Suspect]
     Active Substance: BUPRENORPHINE HYDROCHLORIDE
     Indication: PRODUCT USED FOR UNKNOWN INDICATION
     Dosage: UNK
     Route: 064
     Dates: end: 20140904
  2. SUBUTEX [Suspect]
     Active Substance: BUPRENORPHINE HYDROCHLORIDE
     Dosage: UNK
     Route: 063
     Dates: start: 201409

REACTIONS (8)
  - Diarrhoea neonatal [Unknown]
  - Convulsion neonatal [Unknown]
  - Exposure during breast feeding [Unknown]
  - Musculoskeletal stiffness [Unknown]
  - Tremor neonatal [Unknown]
  - Drug withdrawal syndrome neonatal [Unknown]
  - Foetal exposure during pregnancy [Recovered/Resolved]
  - Neonatal disorder [Unknown]

NARRATIVE: CASE EVENT DATE: 201409
